FAERS Safety Report 16239774 (Version 2)
Quarter: 2019Q2

REPORT INFORMATION
  Report Type: Report from Study
  Country: US (occurrence: US)
  Receive Date: 20190425
  Receipt Date: 20190517
  Transmission Date: 20190711
  Serious: No
  Sender: FDA-Public Use
  Company Number: US-SUNOVION-2019SUN001692

PATIENT
  Age: 75 Year
  Sex: Female
  Weight: 50.79 kg

DRUGS (5)
  1. LONHALA MAGNAIR [Suspect]
     Active Substance: GLYCOPYRROLATE
     Indication: CHRONIC OBSTRUCTIVE PULMONARY DISEASE
     Dosage: UNK UNK, QD
     Route: 055
     Dates: start: 20190504, end: 20190504
  2. PROAIR HFA [Concomitant]
     Active Substance: ALBUTEROL SULFATE
     Dosage: 90 MCG/ACTUATION AEROSOL INHALER (INHALS 2 PUFFS BY MOUTH EVERY 4 HOURS IF NEEDED)
     Route: 055
     Dates: start: 20171020
  3. ALBUTEROL SULFATE AND IPRATROPIUM BROMIDE [Concomitant]
     Active Substance: ALBUTEROL SULFATE\IPRATROPIUM BROMIDE
     Dosage: 2.5 MG/3 ML (0.083%) SOLUTION FOR NEBULIZATION (INHALE 3 ML 3 TIMES A DAY BY NEBULIZATION ROUTE AS N
     Route: 055
     Dates: start: 20190204
  4. BREO ELLIPTA [Concomitant]
     Active Substance: FLUTICASONE FUROATE\VILANTEROL TRIFENATATE
     Dosage: 100 MCG-25 MCG/DOSE POWDER FOR INHALATION (INHALE 1 PUFF EVERY DAY BY INHALATION ROUTE)
     Route: 055
     Dates: start: 20190204
  5. OXYGEN. [Concomitant]
     Active Substance: OXYGEN
     Dosage: 3 LITERS PER NASAL CANULA
     Route: 045
     Dates: start: 20190204

REACTIONS (1)
  - Dyspnoea [Recovered/Resolved]

NARRATIVE: CASE EVENT DATE: 20190504
